FAERS Safety Report 8034049-7 (Version None)
Quarter: 2011Q4

REPORT INFORMATION
  Report Type: 
  Country: None (occurrence: None)
  Receive Date: 20111202
  Receipt Date: 20100520
  Transmission Date: 20120403
  Serious: Yes (Hospitalization)
  Sender: FDA-Public Use
  Company Number: 2010SP028439

PATIENT
  Age: 26 Year
  Sex: Female
  Weight: 97.5234 kg

DRUGS (3)
  1. TOPAMAX [Concomitant]
  2. MULTI-VITAMINS [Concomitant]
  3. NUVARING [Suspect]
     Indication: CONTRACEPTION
     Dates: start: 20070330, end: 20080518

REACTIONS (6)
  - UPPER RESPIRATORY TRACT INFECTION [None]
  - DEHYDRATION [None]
  - POOR VENOUS ACCESS [None]
  - HAEMOCONCENTRATION [None]
  - PULMONARY EMBOLISM [None]
  - LEUKOCYTOSIS [None]
